FAERS Safety Report 6906198-5 (Version None)
Quarter: 2010Q3

REPORT INFORMATION
  Report Type: 
  Country: None (occurrence: None)
  Receive Date: 20100804
  Receipt Date: 20100714
  Transmission Date: 20110219
  Serious: Yes (Hospitalization)
  Sender: FDA-Public Use
  Company Number: PHHO2010AU11148

PATIENT
  Sex: Male
  Weight: 124 kg

DRUGS (5)
  1. AFINITOR [Suspect]
     Indication: COLORECTAL CANCER METASTATIC
     Dosage: 5 MG ALTERNATE DAYS
     Route: 048
     Dates: start: 20100707, end: 20100711
  2. PANITUMUMAB COMP-PAN+ [Suspect]
     Indication: COLORECTAL CANCER METASTATIC
     Dosage: 6 MG/KG
     Route: 042
     Dates: start: 20100707
  3. IRINOTECAN COMP-IRI+ [Suspect]
     Indication: COLORECTAL CANCER METASTATIC
     Dosage: UNK
     Route: 042
     Dates: start: 20100707
  4. PEPCIDINE [Concomitant]
     Indication: GASTROOESOPHAGEAL REFLUX DISEASE
  5. ATACAND [Concomitant]
     Indication: HYPERTENSION

REACTIONS (5)
  - ABDOMINAL DISTENSION [None]
  - COLITIS [None]
  - HYPERTENSION [None]
  - PYREXIA [None]
  - RECTAL HAEMORRHAGE [None]
